FAERS Safety Report 9789590 (Version 1)
Quarter: 2013Q4

REPORT INFORMATION
  Report Type: Spontaneous
  Country: FR (occurrence: FR)
  Receive Date: 20131231
  Receipt Date: 20131231
  Transmission Date: 20140711
  Serious: Yes (Hospitalization)
  Sender: FDA-Public Use
  Company Number: FR-ROCHE-1327553

PATIENT
  Age: 89 Year
  Sex: Female

DRUGS (12)
  1. ROCEPHINE [Suspect]
     Indication: PRODUCT USED FOR UNKNOWN INDICATION
     Route: 042
     Dates: start: 20121205, end: 20121216
  2. CALCIPARINE [Concomitant]
     Route: 058
     Dates: start: 20121210, end: 20131220
  3. HYPERIUM [Concomitant]
     Route: 048
  4. GLIMEPIRIDE [Concomitant]
     Route: 048
  5. BISOPROLOL [Concomitant]
     Route: 048
  6. COAPROVEL [Concomitant]
     Route: 048
  7. EUPRESSYL [Concomitant]
     Route: 048
  8. FUROSEMIDE [Concomitant]
     Route: 048
  9. DAFALGAN [Concomitant]
     Route: 048
  10. PARIET [Concomitant]
     Route: 048
  11. STRESAM [Concomitant]
     Route: 048
  12. AMOXICILLIN [Concomitant]
     Route: 065

REACTIONS (1)
  - Drug reaction with eosinophilia and systemic symptoms [Recovered/Resolved with Sequelae]
